FAERS Safety Report 10880663 (Version 1)
Quarter: 2015Q1

REPORT INFORMATION
  Report Type: Spontaneous
  Country: JP (occurrence: JP)
  Receive Date: 20150303
  Receipt Date: 20150303
  Transmission Date: 20150721
  Serious: Yes (Other)
  Sender: FDA-Public Use
  Company Number: JP-ROCHE-1527409

PATIENT
  Age: 88 Year
  Sex: Male
  Weight: 48 kg

DRUGS (14)
  1. SYMBICORT [Concomitant]
     Active Substance: BUDESONIDE\FORMOTEROL FUMARATE DIHYDRATE
     Dosage: DOSAGE IS UNCERTAIN.
     Route: 055
  2. THEOLONG [Concomitant]
     Active Substance: THEOPHYLLINE ANHYDROUS
     Indication: INFLUENZA
     Route: 048
     Dates: start: 20090711
  3. TAMIFLU [Suspect]
     Active Substance: OSELTAMIVIR PHOSPHATE
     Indication: INFLUENZA
     Route: 048
     Dates: start: 20141225, end: 20141225
  4. TAMIFLU [Suspect]
     Active Substance: OSELTAMIVIR PHOSPHATE
     Route: 048
     Dates: start: 20141226, end: 20141227
  5. MUCOSOLVAN [Concomitant]
     Active Substance: AMBROXOL\CLENBUTEROL
     Indication: INFLUENZA
     Dosage: DOSAGE IS UNCERTAIN.
     Route: 048
  6. MUCODYNE [Concomitant]
     Active Substance: CARBOCYSTEINE
     Indication: INFLUENZA
     Dosage: DOSAGE IS UNCERTAIN.
     Route: 048
  7. TAMIFLU [Suspect]
     Active Substance: OSELTAMIVIR PHOSPHATE
     Route: 048
     Dates: start: 20141228, end: 20150101
  8. TULOBUTEROL [Concomitant]
     Active Substance: TULOBUTEROL
     Indication: INFLUENZA
     Dosage: DOSAGE IS UNCERTAIN.
     Route: 062
     Dates: start: 20141225
  9. CALONAL [Concomitant]
     Active Substance: ACETAMINOPHEN
     Dosage: DOSAGE IS UNCERTAIN.
     Route: 065
     Dates: start: 20141225
  10. THEO-DUR [Concomitant]
     Active Substance: THEOPHYLLINE ANHYDROUS
     Dosage: DOSAGE IS UNCERTAIN.
     Route: 065
  11. GENINAX [Concomitant]
     Active Substance: GARENOXACIN MESYLATE
     Dosage: DOSAGE IS UNCERTAIN.
     Route: 048
     Dates: start: 20141225
  12. SPIRIVA [Concomitant]
     Active Substance: TIOTROPIUM BROMIDE MONOHYDRATE
     Indication: INFLUENZA
     Dosage: DOSAGE IS UNCERTAIN.
     Route: 055
     Dates: start: 20131017
  13. MAGMITT [Concomitant]
     Active Substance: MAGNESIUM OXIDE
     Dosage: DOSAGE IS UNCERTAIN.
     Route: 065
  14. CARNACULIN [Concomitant]
     Active Substance: KALLIDINOGENASE
     Indication: INFLUENZA
     Dosage: DOSAGE IS UNCERTAIN.
     Route: 048
     Dates: start: 20081129

REACTIONS (2)
  - Poriomania [Recovered/Resolved]
  - Incoherent [Recovered/Resolved]

NARRATIVE: CASE EVENT DATE: 20141227
